FAERS Safety Report 7547217-5 (Version None)
Quarter: 2011Q2

REPORT INFORMATION
  Report Type: 
  Country: None (occurrence: None)
  Receive Date: 20110614
  Receipt Date: 20110531
  Transmission Date: 20111010
  Serious: No
  Sender: FDA-Public Use
  Company Number: US-B.I. PHARMACEUTICALS,INC./RIDGEFIELD-2011-BP-10742BP

PATIENT
  Sex: Male

DRUGS (8)
  1. MULTAQ [Concomitant]
  2. LOVAZA [Concomitant]
  3. FAMOTIDINE [Concomitant]
  4. RED YEAST RICE [Concomitant]
  5. PRESSER EYE VISION [Concomitant]
  6. FLOMAX [Concomitant]
  7. TOPROL-XL [Concomitant]
  8. PRADAXA [Suspect]
     Indication: ATRIAL FIBRILLATION
     Dosage: 150 MG
     Dates: start: 20110211, end: 20110429

REACTIONS (2)
  - CHILLS [None]
  - ABDOMINAL DISCOMFORT [None]
